FAERS Safety Report 23143993 (Version 1)
Quarter: 2023Q4

REPORT INFORMATION
  Report Type: Spontaneous
  Country: US (occurrence: US)
  Receive Date: 20231103
  Receipt Date: 20231103
  Transmission Date: 20240109
  Serious: Yes (Other)
  Sender: FDA-Public Use
  Company Number: US-ORGANON-O2311USA000277

PATIENT
  Age: 46 Year
  Sex: Male
  Weight: 122.45 kg

DRUGS (1)
  1. DULERA [Suspect]
     Active Substance: FORMOTEROL FUMARATE DIHYDRATE\MOMETASONE FUROATE
     Indication: Asthma
     Dosage: 2 PUFFS TWICE DAILY (120 DOSES)

REACTIONS (5)
  - Choking [Unknown]
  - Cough [Unknown]
  - Product contamination physical [Unknown]
  - Poor quality device used [Unknown]
  - Wrong technique in device usage process [Unknown]

NARRATIVE: CASE EVENT DATE: 20231031
